FAERS Safety Report 15400585 (Version 1)
Quarter: 2018Q3

REPORT INFORMATION
  Report Type: Spontaneous
  Country: US (occurrence: US)
  Receive Date: 20180919
  Receipt Date: 20180919
  Transmission Date: 20181010
  Serious: Yes (Other)
  Sender: FDA-Public Use
  Company Number: US-CONCORDIA PHARMACEUTICALS INC.-GSH201809-003232

PATIENT
  Age: 6 Year
  Sex: Male

DRUGS (8)
  1. CLONIDINE. [Suspect]
     Active Substance: CLONIDINE
     Dosage: AT NIGHT
  2. OLANZAPINE. [Suspect]
     Active Substance: OLANZAPINE
     Dosage: DOSE DECREASED
  3. CLONIDINE. [Suspect]
     Active Substance: CLONIDINE
     Dosage: OPTIMIZATION OF CLONIDINE DOSE
  4. LORAZEPAM. [Suspect]
     Active Substance: LORAZEPAM
     Dosage: DOSE REDUCED
  5. OLANZAPINE. [Suspect]
     Active Substance: OLANZAPINE
  6. DIPHENHYDRAMINE. [Suspect]
     Active Substance: DIPHENHYDRAMINE
     Indication: AGITATION
  7. LORAZEPAM. [Suspect]
     Active Substance: LORAZEPAM
     Dosage: AS NEEDED AT NIGHT
  8. OLANZAPINE. [Suspect]
     Active Substance: OLANZAPINE
     Dosage: DOSE INCREASED

REACTIONS (1)
  - Drug tolerance [Unknown]
